FAERS Safety Report 7615758-8 (Version None)
Quarter: 2011Q3

REPORT INFORMATION
  Report Type: 
  Country: None (occurrence: None)
  Receive Date: 20110711
  Receipt Date: 20110705
  Transmission Date: 20111222
  Serious: Yes (Other)
  Sender: FDA-Public Use
  Company Number: TPA2011A03417

PATIENT
  Age: 66 Year
  Sex: Male
  Weight: 211 kg

DRUGS (6)
  1. REGLAN [Concomitant]
  2. ZOCOR [Concomitant]
  3. ALTACE [Concomitant]
  4. ACTOS [Suspect]
     Indication: TYPE 2 DIABETES MELLITUS
     Dosage: 30 MG, 1 IN 1 D, ORAL
     Route: 048
     Dates: start: 20050101, end: 20110624
  5. GLYBURIDE [Concomitant]
  6. METFORMIN HCL [Concomitant]

REACTIONS (1)
  - BLADDER TRANSITIONAL CELL CARCINOMA [None]
